FAERS Safety Report 25181046 (Version 1)
Quarter: 2025Q2

REPORT INFORMATION
  Report Type: Spontaneous
  Country: US (occurrence: US)
  Receive Date: 20250410
  Receipt Date: 20250410
  Transmission Date: 20250717
  Serious: No
  Sender: NOVARTIS
  Company Number: US-002147023-NVSC2025US058334

PATIENT
  Sex: Male

DRUGS (1)
  1. EGATEN [Suspect]
     Active Substance: TRICLABENDAZOLE
     Indication: Product used for unknown indication
     Route: 065

REACTIONS (2)
  - Product availability issue [Unknown]
  - Infection parasitic [Unknown]
